FAERS Safety Report 8575748 (Version 3)
Quarter: 2016Q2

REPORT INFORMATION
  Report Type: Spontaneous
  Country: US (occurrence: US)
  Receive Date: 20120523
  Receipt Date: 20160513
  Transmission Date: 20160815
  Serious: Yes (Other)
  Sender: FDA-Public Use
  Company Number: US-ASTRAZENECA-2012SE24835

PATIENT
  Age: 55 Year
  Sex: Female

DRUGS (14)
  1. SEROQUEL [Suspect]
     Active Substance: QUETIAPINE FUMARATE
     Indication: BIPOLAR DISORDER
     Route: 048
  2. SEROQUEL [Suspect]
     Active Substance: QUETIAPINE FUMARATE
     Indication: BIPOLAR DISORDER
     Dosage: 25MG X5 TABLETS AT BEDTIME
     Route: 048
  3. SEROQUEL [Suspect]
     Active Substance: QUETIAPINE FUMARATE
     Indication: BIPOLAR DISORDER
     Dosage: GENERIC QUETIAPINE FUMARATE 50MG X5 TABLETS AT BEDTIME
     Route: 048
  4. SEROQUEL [Suspect]
     Active Substance: QUETIAPINE FUMARATE
     Indication: SLEEP DISORDER
     Dosage: GENERIC QUETIAPINE FUMARATE 50MG X5 TABLETS AT BEDTIME
     Route: 048
  5. SEROQUEL [Suspect]
     Active Substance: QUETIAPINE FUMARATE
     Indication: SLEEP DISORDER
     Route: 048
     Dates: start: 2008
  6. SEROQUEL [Suspect]
     Active Substance: QUETIAPINE FUMARATE
     Indication: BIPOLAR DISORDER
     Route: 048
  7. SEROQUEL [Suspect]
     Active Substance: QUETIAPINE FUMARATE
     Indication: SLEEP DISORDER
     Dosage: 25MG X5 TABLETS AT BEDTIME
     Route: 048
  8. SEROQUEL [Suspect]
     Active Substance: QUETIAPINE FUMARATE
     Indication: SLEEP DISORDER
     Route: 048
  9. VALIUM [Concomitant]
     Active Substance: DIAZEPAM
  10. SEROQUEL [Suspect]
     Active Substance: QUETIAPINE FUMARATE
     Indication: BIPOLAR DISORDER
     Route: 048
     Dates: start: 2008
  11. SEROQUEL [Suspect]
     Active Substance: QUETIAPINE FUMARATE
     Indication: BIPOLAR DISORDER
     Route: 048
  12. LEXAPRO [Concomitant]
     Active Substance: ESCITALOPRAM OXALATE
  13. SEROQUEL [Suspect]
     Active Substance: QUETIAPINE FUMARATE
     Indication: SLEEP DISORDER
     Route: 048
  14. SEROQUEL [Suspect]
     Active Substance: QUETIAPINE FUMARATE
     Indication: SLEEP DISORDER
     Route: 048

REACTIONS (10)
  - Abdominal discomfort [Unknown]
  - Feeling abnormal [Unknown]
  - Depression [Unknown]
  - Meniscus injury [Unknown]
  - Joint injury [Unknown]
  - Drug intolerance [Unknown]
  - Product quality issue [Unknown]
  - Diarrhoea [Unknown]
  - Insomnia [Unknown]
  - Malaise [Unknown]

NARRATIVE: CASE EVENT DATE: 201111
